FAERS Safety Report 6739018-2 (Version None)
Quarter: 2010Q2

REPORT INFORMATION
  Report Type: 
  Country: None (occurrence: None)
  Receive Date: 20100524
  Receipt Date: 20100524
  Transmission Date: 20101027
  Serious: Yes (Life-Threatening, Other)
  Sender: FDA-Public Use
  Company Number: None

PATIENT
  Age: 39 Year
  Sex: Female
  Weight: 68.0396 kg

DRUGS (2)
  1. SEROQUEL [Suspect]
     Indication: DEPRESSION
     Dosage: CAN'T RECALL-THREW OUT BOTTLE ONCE A DAY PO
     Route: 048
  2. SEROQUEL [Suspect]
     Indication: INSOMNIA
     Dosage: CAN'T RECALL-THREW OUT BOTTLE ONCE A DAY PO
     Route: 048

REACTIONS (2)
  - CRYING [None]
  - SUICIDAL IDEATION [None]
